FAERS Safety Report 20536888 (Version 1)
Quarter: 2022Q1

REPORT INFORMATION
  Report Type: Spontaneous
  Country: CN (occurrence: CN)
  Receive Date: 20220302
  Receipt Date: 20220302
  Transmission Date: 20220423
  Serious: Yes (Hospitalization, Other)
  Sender: FDA-Public Use
  Company Number: CN-BAYER-2021A238533

PATIENT
  Age: 63 Year
  Sex: Female
  Weight: 55 kg

DRUGS (4)
  1. RIVAROXABAN [Suspect]
     Active Substance: RIVAROXABAN
     Indication: Atrial fibrillation
     Dosage: 15 MG, QD
     Route: 048
     Dates: start: 20161011, end: 20210916
  2. RIVAROXABAN [Suspect]
     Active Substance: RIVAROXABAN
     Dosage: 10 MG, QD
     Route: 048
     Dates: start: 20210917, end: 20210918
  3. DIGOXIN [Suspect]
     Active Substance: DIGOXIN
     Indication: Cardiac failure
     Dosage: 0.25 MG, QD
     Route: 048
     Dates: start: 2001, end: 20210916
  4. DIGOXIN [Suspect]
     Active Substance: DIGOXIN
     Indication: Cardiac failure
     Dosage: 0.125 MG, QD
     Route: 048
     Dates: start: 20210917, end: 20210919

REACTIONS (11)
  - Drug level increased [Unknown]
  - Upper gastrointestinal haemorrhage [Unknown]
  - Amaurosis [Unknown]
  - Syncope [Unknown]
  - Renal impairment [Unknown]
  - Diarrhoea [Unknown]
  - Haematuria [Unknown]
  - Gingival swelling [Unknown]
  - Prescribed underdose [Unknown]
  - Intentional product use issue [Unknown]
  - Off label use [Unknown]

NARRATIVE: CASE EVENT DATE: 20161011
